FAERS Safety Report 9138038 (Version 2)
Quarter: 2013Q3

REPORT INFORMATION
  Report Type: Spontaneous
  Country: FR (occurrence: FR)
  Receive Date: 20130304
  Receipt Date: 20130910
  Transmission Date: 20140515
  Serious: Yes (Disabling, Other)
  Sender: FDA-Public Use
  Company Number: FR-ASTRAZENECA-2013SE12547

PATIENT
  Age: 70 Year
  Sex: Female

DRUGS (10)
  1. TENORMINE [Suspect]
     Route: 048
  2. ATENOLOL SANDOZ [Suspect]
     Route: 048
  3. CO APROVEL [Concomitant]
     Indication: HYPERTENSION
  4. LERCAN [Concomitant]
     Indication: HYPERTENSION
  5. ARCOXIA [Concomitant]
  6. TRAMADOL [Concomitant]
  7. FENTANYL [Concomitant]
  8. ACTISKENAN [Concomitant]
  9. IRBESARTAN HYDROCHLOROTHIAZIDE [Concomitant]
     Indication: HYPERTENSION
  10. LERCANIDIPINE [Concomitant]
     Indication: HYPERTENSION

REACTIONS (4)
  - Skin ulcer [Recovering/Resolving]
  - Erysipelas [Recovering/Resolving]
  - Impaired healing [Unknown]
  - Staphylococcus test positive [Unknown]
